FAERS Safety Report 5811525-6 (Version None)
Quarter: 2008Q3

REPORT INFORMATION
  Report Type: 
  Country: None (occurrence: None)
  Receive Date: 20080714
  Receipt Date: 20080627
  Transmission Date: 20090109
  Serious: Yes (Hospitalization)
  Sender: FDA-Public Use
  Company Number: DSA_62153_2008

PATIENT
  Age: 25 Year
  Sex: Male

DRUGS (6)
  1. DIHYDROERGOTAMINE MESYLATE [Suspect]
     Indication: MIGRAINE
     Dosage: (DF)
  2. FENTANYL [Suspect]
     Indication: ANAESTHESIA
     Dosage: (20 UG 1X INTRATHECAL), (2 UG/KG 1X INTRAVENOUS BOLUS)
     Route: 037
  3. FENTANYL [Suspect]
     Indication: ANAESTHESIA
     Dosage: (20 UG 1X INTRATHECAL), (2 UG/KG 1X INTRAVENOUS BOLUS)
     Route: 037
  4. MARIJUANA [Concomitant]
  5. METHYLENEDIOXYAMPHETAMINE [Concomitant]
  6. EPHEDRINE SUL CAP [Concomitant]

REACTIONS (4)
  - APPENDICITIS [None]
  - ERYTHEMA [None]
  - HALLUCINATIONS, MIXED [None]
  - SEROTONIN SYNDROME [None]
